FAERS Safety Report 6974059-1 (Version None)
Quarter: 2010Q3

REPORT INFORMATION
  Report Type: 
  Country: None (occurrence: None)
  Receive Date: 20100909
  Receipt Date: 20100902
  Transmission Date: 20110219
  Serious: Yes (Disabling, Other)
  Sender: FDA-Public Use
  Company Number: BR-PFIZER INC-2010111463

PATIENT
  Sex: Male

DRUGS (3)
  1. LIPITOR [Suspect]
     Indication: BLOOD CHOLESTEROL
     Dosage: 10 MG, 1X/DAY
     Route: 048
     Dates: start: 20100101, end: 20100801
  2. LEXAPRO [Concomitant]
     Dosage: UNK
     Dates: start: 20100801
  3. NITROFURANTOIN [Concomitant]
     Dosage: UNK
     Dates: start: 20090101

REACTIONS (1)
  - HYPOAESTHESIA [None]
